FAERS Safety Report 17111239 (Version 1)
Quarter: 2019Q4

REPORT INFORMATION
  Report Type: Spontaneous
  Country: AU (occurrence: AU)
  Receive Date: 20191204
  Receipt Date: 20191204
  Transmission Date: 20200122
  Serious: Yes (Hospitalization, Other)
  Sender: FDA-Public Use
  Company Number: AU-BRISTOL-MYERS SQUIBB COMPANY-BMS-2019-113861

PATIENT
  Sex: Female

DRUGS (3)
  1. PANADOL [Concomitant]
     Active Substance: ACETAMINOPHEN
     Indication: PRODUCT USED FOR UNKNOWN INDICATION
     Dosage: UNK
     Route: 065
  2. OPDIVO [Suspect]
     Active Substance: NIVOLUMAB
     Indication: LUNG NEOPLASM MALIGNANT
     Dosage: ^400 AND SOMETHING MILIGRAMS^ EVERY 4 WEEKS
     Route: 065
     Dates: start: 20171228
  3. VITAMIN C [ASCORBIC ACID;BIOFLAVONOIDS NOS] [Concomitant]
     Indication: PRODUCT USED FOR UNKNOWN INDICATION
     Dosage: UNK
     Route: 065

REACTIONS (11)
  - Back pain [Unknown]
  - Myalgia [Unknown]
  - Chest discomfort [Unknown]
  - Gastrointestinal disorder [Unknown]
  - Rales [Unknown]
  - Dysphonia [Unknown]
  - Sinusitis [Unknown]
  - Tumour inflammation [Recovered/Resolved]
  - Dehydration [Unknown]
  - Respiration abnormal [Unknown]
  - Dyspnoea [Unknown]
